FAERS Safety Report 4431825-4 (Version None)
Quarter: 2004Q3

REPORT INFORMATION
  Report Type: 
  Country: None (occurrence: None)
  Receive Date: 20040818
  Receipt Date: 20040508
  Transmission Date: 20050211
  Serious: Yes (Death)
  Sender: FDA-Public Use
  Company Number: HQWYE994605AUG04

PATIENT
  Age: 69 Year
  Sex: Male

DRUGS (2)
  1. ANCARON (AMIODARONE, TABLET) [Suspect]
     Indication: VENTRICULAR TACHYCARDIA
     Dosage: 400 MG 1X PER 1 DAY
     Route: 048
     Dates: start: 20040727, end: 20040728
  2. SHINBIT (NIFEKALANT HYDROCHLORIDE, ) [Suspect]
     Indication: VENTRICULAR TACHYCARDIA
     Dosage: 2 AMPULES DAILY
     Route: 042
     Dates: start: 20040727, end: 20040728

REACTIONS (3)
  - ADRENAL INSUFFICIENCY [None]
  - HYPOGLYCAEMIA [None]
  - METABOLIC ACIDOSIS [None]
